FAERS Safety Report 13657754 (Version 3)
Quarter: 2018Q4

REPORT INFORMATION
  Report Type: Spontaneous
  Country: US (occurrence: US)
  Receive Date: 20170615
  Receipt Date: 20181001
  Transmission Date: 20190204
  Serious: Yes (Other)
  Sender: FDA-Public Use
  Company Number: US-AMGEN-USASP2017087761

PATIENT
  Age: 70 Year
  Sex: Female

DRUGS (1)
  1. XGEVA [Suspect]
     Active Substance: DENOSUMAB
     Indication: METASTASES TO BONE
     Dosage: UNK
     Route: 065
     Dates: start: 2011, end: 2015

REACTIONS (12)
  - Osteonecrosis of jaw [Not Recovered/Not Resolved]
  - Quality of life decreased [Unknown]
  - Emotional distress [Unknown]
  - Loose tooth [Unknown]
  - Condition aggravated [Unknown]
  - Tooth loss [Unknown]
  - Bone loss [Unknown]
  - Metastases to neck [Unknown]
  - Tooth disorder [Unknown]
  - Gingival bleeding [Unknown]
  - Gingival erosion [Unknown]
  - Impaired healing [Unknown]

NARRATIVE: CASE EVENT DATE: 2015
